FAERS Safety Report 9253995 (Version 3)
Quarter: 2013Q4

REPORT INFORMATION
  Report Type: Spontaneous
  Country: GB (occurrence: None)
  Receive Date: 20130418
  Receipt Date: 20131021
  Transmission Date: 20140711
  Serious: Yes (Disabling)
  Sender: FDA-Public Use
  Company Number: AUR-APL-2013-03044

PATIENT
  Age: 69 Year
  Sex: Male

DRUGS (5)
  1. GABAPENTIN (GABAPENTIN) [Suspect]
     Indication: NEURALGIA
     Dosage: (600 MG, 2 IN 1 D)
     Route: 048
     Dates: end: 20130326
  2. DIAZEPAM (DIAZEPAM) [Concomitant]
  3. FUROSEMIDE (FUROSEMIDE) [Concomitant]
  4. IBUPROFEN (IBUPROFEN) [Concomitant]
  5. ZOPICLONE (ZOPICLONE) [Concomitant]

REACTIONS (3)
  - Extremity contracture [None]
  - Hand deformity [None]
  - Neuropathy peripheral [None]
